FAERS Safety Report 20241164 (Version 1)
Quarter: 2021Q4

REPORT INFORMATION
  Report Type: Spontaneous
  Country: US (occurrence: US)
  Receive Date: 20211228
  Receipt Date: 20211228
  Transmission Date: 20220303
  Serious: Yes (Death, Other)
  Sender: FDA-Public Use
  Company Number: US-PURDUE-USA-2020-0220957

PATIENT
  Age: 40 Year
  Sex: Female
  Weight: 66.667 kg

DRUGS (1)
  1. OXYCONTIN [Suspect]
     Active Substance: OXYCODONE HYDROCHLORIDE
     Indication: Product used for unknown indication
     Dosage: UNK
     Route: 048

REACTIONS (8)
  - Adverse event [Fatal]
  - Overdose [Unknown]
  - Drug dependence [Unknown]
  - Emotional distress [Unknown]
  - Post-traumatic stress disorder [Unknown]
  - Depression [Unknown]
  - Anxiety [Unknown]
  - Incoherent [Unknown]

NARRATIVE: CASE EVENT DATE: 20210305
